FAERS Safety Report 9483927 (Version 1)
Quarter: 2013Q3

REPORT INFORMATION
  Report Type: Spontaneous
  Country: US (occurrence: US)
  Receive Date: 20130828
  Receipt Date: 20130828
  Transmission Date: 20140515
  Serious: Yes (Hospitalization, Other)
  Sender: FDA-Public Use
  Company Number: CHPA2013US013381

PATIENT
  Age: 88 Year
  Sex: Male

DRUGS (3)
  1. ACETYLSALICYLIC ACID [Suspect]
     Indication: PROPHYLAXIS
     Dosage: 1 UNK, QD
     Route: 048
  2. SIMVASTATIN [Concomitant]
     Dosage: 40 MG, QD
  3. SYNTHYROID [Concomitant]
     Indication: THYROID DISORDER
     Dosage: 112 MG, QD

REACTIONS (6)
  - Cerebrovascular accident [Recovering/Resolving]
  - Syncope [Not Recovered/Not Resolved]
  - Rotator cuff syndrome [Not Recovered/Not Resolved]
  - Fall [Recovered/Resolved]
  - Off label use [Unknown]
  - Incorrect drug administration duration [Unknown]
